FAERS Safety Report 7362797-0 (Version None)
Quarter: 2011Q1

REPORT INFORMATION
  Report Type: 
  Country: None (occurrence: None)
  Receive Date: 20110321
  Receipt Date: 20110310
  Transmission Date: 20110831
  Serious: No
  Sender: FDA-Public Use
  Company Number: US-BIOGENIDEC-2011BI009095

PATIENT
  Sex: Female

DRUGS (1)
  1. TYSABRI [Suspect]
     Indication: MULTIPLE SCLEROSIS
     Route: 042
     Dates: start: 20100309

REACTIONS (6)
  - CHILLS [None]
  - APHONIA [None]
  - PYREXIA [None]
  - PAIN [None]
  - INFLUENZA [None]
  - MALAISE [None]
